FAERS Safety Report 25542201 (Version 1)
Quarter: 2025Q3

REPORT INFORMATION
  Report Type: Spontaneous
  Country: US (occurrence: US)
  Receive Date: 20250711
  Receipt Date: 20250711
  Transmission Date: 20251021
  Serious: Yes (Life-Threatening, Hospitalization)
  Sender: MACLEODS
  Company Number: US-MLMSERVICE-20250627-PI558643-00201-1

PATIENT

DRUGS (4)
  1. LIDOCAINE [Suspect]
     Active Substance: LIDOCAINE
     Indication: Product used for unknown indication
     Route: 065
  2. ISOPROTERENOL [Concomitant]
     Active Substance: ISOPROTERENOL
     Indication: Product used for unknown indication
     Route: 065
  3. SODIUM BICARBONATE [Concomitant]
     Active Substance: SODIUM BICARBONATE
     Indication: Product used for unknown indication
     Route: 065
  4. NALOXONE [Concomitant]
     Active Substance: NALOXONE
     Indication: Product used for unknown indication
     Route: 065

REACTIONS (2)
  - Torsade de pointes [Unknown]
  - Drug level above therapeutic [Unknown]
